FAERS Safety Report 18449099 (Version 1)
Quarter: 2020Q4

REPORT INFORMATION
  Report Type: Spontaneous
  Country: US (occurrence: US)
  Receive Date: 20201031
  Receipt Date: 20201031
  Transmission Date: 20210114
  Serious: Yes (Other)
  Sender: FDA-Public Use
  Company Number: US-PURDUE PHARMA-USA-2020-0151954

PATIENT
  Sex: Female

DRUGS (2)
  1. OXYCONTIN [Suspect]
     Active Substance: OXYCODONE HYDROCHLORIDE
     Indication: PAIN IN EXTREMITY
     Dosage: 10 MG, 2 -3 TIMES A DAY
     Route: 048
  2. OXYCONTIN [Suspect]
     Active Substance: OXYCODONE HYDROCHLORIDE
     Dosage: 25 MG, 2 -3 TIMES A DAY
     Route: 048

REACTIONS (5)
  - Drug dependence [Unknown]
  - Fatigue [Unknown]
  - Feeling abnormal [Unknown]
  - Euphoric mood [Unknown]
  - Loss of personal independence in daily activities [Unknown]
